FAERS Safety Report 22089652 (Version 1)
Quarter: 2023Q1

REPORT INFORMATION
  Report Type: Spontaneous
  Country: US (occurrence: US)
  Receive Date: 20230313
  Receipt Date: 20230313
  Transmission Date: 20230417
  Serious: No
  Sender: FDA-Public Use
  Company Number: US-009507513-2302USA007906

PATIENT
  Age: 18 Year
  Sex: Male

DRUGS (2)
  1. TEMODAR [Suspect]
     Active Substance: TEMOZOLOMIDE
     Indication: Medulloblastoma
     Dosage: UNK
  2. IRINOTECAN [Concomitant]
     Active Substance: IRINOTECAN
     Indication: Medulloblastoma
     Dosage: UNK

REACTIONS (1)
  - Product use in unapproved indication [Unknown]
